FAERS Safety Report 12958252 (Version 7)
Quarter: 2018Q2

REPORT INFORMATION
  Report Type: Report from Study
  Country: AR (occurrence: AR)
  Receive Date: 20161120
  Receipt Date: 20180530
  Transmission Date: 20180711
  Serious: Yes (Hospitalization, Other)
  Sender: FDA-Public Use
  Company Number: PHHY2016AR158846

PATIENT
  Sex: Female

DRUGS (6)
  1. SANDOSTATIN LAR DEPOT [Suspect]
     Active Substance: OCTREOTIDE ACETATE
     Dosage: UNK, APPLICATION OF SANDOSTATIN LAR EVERY TWO MONTHS
     Route: 065
  2. SANDOSTATIN LAR DEPOT [Suspect]
     Active Substance: OCTREOTIDE ACETATE
     Dosage: 20 MG, QMO
     Route: 065
  3. CORTISONE [Concomitant]
     Active Substance: CORTISONE\HYDROCORTISONE
     Indication: CORTISOL DECREASED
     Dosage: UNK
     Route: 065
  4. SANDOSTATIN LAR DEPOT [Suspect]
     Active Substance: OCTREOTIDE ACETATE
     Dosage: 20 MG, QMO
     Route: 065
  5. LEVOTHYROXINE. [Concomitant]
     Active Substance: LEVOTHYROXINE
     Indication: PRODUCT USED FOR UNKNOWN INDICATION
     Route: 065
  6. SANDOSTATIN LAR DEPOT [Suspect]
     Active Substance: OCTREOTIDE ACETATE
     Indication: ACROMEGALY
     Dosage: 30 MG,EVERY 28 DAYS
     Route: 065
     Dates: start: 20070401

REACTIONS (29)
  - Cholelithiasis [Recovered/Resolved]
  - Fistula [Not Recovered/Not Resolved]
  - Cortisol decreased [Recovered/Resolved]
  - Adenoma benign [Not Recovered/Not Resolved]
  - Weight increased [Unknown]
  - Cerebrospinal fluid leakage [Not Recovered/Not Resolved]
  - Full blood count decreased [Recovered/Resolved]
  - Red blood cell count abnormal [Recovered/Resolved]
  - Gallbladder disorder [Recovered/Resolved]
  - Meningioma [Not Recovered/Not Resolved]
  - Urinary tract infection [Recovered/Resolved]
  - Pyrexia [Recovered/Resolved]
  - Arthralgia [Not Recovered/Not Resolved]
  - Tremor [Unknown]
  - Calcinosis [Unknown]
  - Blood growth hormone decreased [Unknown]
  - Inappropriate schedule of drug administration [Recovered/Resolved]
  - Cystitis [Recovered/Resolved]
  - Bone pain [Not Recovered/Not Resolved]
  - Investigation abnormal [Unknown]
  - Chromaturia [Recovered/Resolved]
  - Osteoarthritis [Not Recovered/Not Resolved]
  - Hormone level abnormal [Unknown]
  - Gait disturbance [Unknown]
  - Discomfort [Recovered/Resolved]
  - Diabetes mellitus [Not Recovered/Not Resolved]
  - Hunger [Unknown]
  - Musculoskeletal pain [Not Recovered/Not Resolved]
  - Insulin-like growth factor increased [Not Recovered/Not Resolved]

NARRATIVE: CASE EVENT DATE: 2007
